FAERS Safety Report 8201941-X (Version None)
Quarter: 2012Q1

REPORT INFORMATION
  Report Type: 
  Country: None (occurrence: None)
  Receive Date: 20120312
  Receipt Date: 20120308
  Transmission Date: 20120608
  Serious: Yes (Death, Other)
  Sender: FDA-Public Use
  Company Number: AU-PFIZER INC-2012062398

PATIENT
  Age: 62 Year
  Sex: Female

DRUGS (3)
  1. METFORMIN HYDROCHLORIDE [Concomitant]
     Dosage: 500 MG, TDS
  2. ATORVASTATIN CALCIUM [Suspect]
     Indication: DYSLIPIDAEMIA
     Dosage: 20 MG, UNK
  3. GLICLAZIDE [Concomitant]
     Dosage: 80 MG, TDS

REACTIONS (2)
  - RHABDOMYOLYSIS [None]
  - RESPIRATORY FAILURE [None]
